FAERS Safety Report 14083163 (Version 3)
Quarter: 2017Q4

REPORT INFORMATION
  Report Type: Report from Study
  Country: None (occurrence: AT)
  Receive Date: 20171012
  Receipt Date: 20171113
  Transmission Date: 20180321
  Serious: Yes (Hospitalization)
  Sender: FDA-Public Use
  Company Number: AT-ABBVIE-17K-009-2120415-00

PATIENT
  Age: 76 Year
  Sex: Female

DRUGS (4)
  1. DUODOPA [Suspect]
     Active Substance: CARBIDOPA\LEVODOPA
     Dosage: 16H THERPY:??MD: 6ML, CR DAYTIME: 3.4ML/H; ED: 1.3ML
     Route: 050
     Dates: start: 2017, end: 2017
  2. DUODOPA [Suspect]
     Active Substance: CARBIDOPA\LEVODOPA
     Dosage: CR DAYTIME: 3.6ML/H
     Route: 050
     Dates: start: 201710, end: 2017
  3. DUODOPA [Suspect]
     Active Substance: CARBIDOPA\LEVODOPA
     Dosage: CR DAYTIME: 4 ML/H
     Route: 050
     Dates: start: 2017
  4. DUODOPA [Suspect]
     Active Substance: CARBIDOPA\LEVODOPA
     Indication: PARKINSON^S DISEASE
     Dosage: 16H THERAPY
     Route: 050
     Dates: start: 20170620, end: 2017

REACTIONS (7)
  - Malaise [Not Recovered/Not Resolved]
  - Akinesia [Not Recovered/Not Resolved]
  - Akinesia [Recovered/Resolved]
  - Akinesia [Recovering/Resolving]
  - Decreased appetite [Not Recovered/Not Resolved]
  - Device dislocation [Recovered/Resolved]
  - Fall [Not Recovered/Not Resolved]

NARRATIVE: CASE EVENT DATE: 2017
